FAERS Safety Report 8246139-4 (Version None)
Quarter: 2012Q1

REPORT INFORMATION
  Report Type: 
  Country: None (occurrence: None)
  Receive Date: 20120327
  Receipt Date: 20120228
  Transmission Date: 20120608
  Serious: Yes (Hospitalization)
  Sender: FDA-Public Use
  Company Number: 12AE003

PATIENT
  Age: 49 Year
  Sex: Female
  Weight: 52.1637 kg

DRUGS (3)
  1. IBUPROFEN 200MG [Suspect]
     Indication: MYALGIA
     Dosage: 1 TABLET
     Dates: end: 20110801
  2. PSEUDOEPHEDRINE HCL [Concomitant]
  3. BENADRYL [Concomitant]

REACTIONS (3)
  - DYSPHAGIA [None]
  - URTICARIA [None]
  - SWELLING FACE [None]
